FAERS Safety Report 4393530-2 (Version None)
Quarter: 2004Q3

REPORT INFORMATION
  Report Type: 
  Country: None (occurrence: None)
  Receive Date: 20040701
  Receipt Date: 20040618
  Transmission Date: 20050211
  Serious: Yes (Hospitalization)
  Sender: FDA-Public Use
  Company Number: 2004041875

PATIENT
  Age: 74 Year
  Sex: Female

DRUGS (7)
  1. TAHOR (ATORVASTATIN) [Suspect]
     Indication: HYPERCHOLESTEROLAEMIA
     Dosage: 40 MG (1 IN 1 D),
     Dates: start: 20040107, end: 20040101
  2. CELIPROLOL (CELIPROLOL) [Suspect]
     Indication: HYPERTENSION
     Dates: start: 20020101, end: 20040101
  3. AMLODIPINE [Concomitant]
  4. GLICLAZIDE (GLICLAZIDE) [Concomitant]
  5. ACARBOSE (ACARBOSE) [Concomitant]
  6. LEVOTHYROXINE SODIUM [Concomitant]
  7. ZOLPIDEM (ZOLPIDEM) [Concomitant]

REACTIONS (4)
  - ANTINUCLEAR ANTIBODY POSITIVE [None]
  - CD4/CD8 RATIO INCREASED [None]
  - INTERSTITIAL LUNG DISEASE [None]
  - PULMONARY FIBROSIS [None]
